FAERS Safety Report 4852858-X (Version None)
Quarter: 2005Q4

REPORT INFORMATION
  Report Type: 
  Country: None (occurrence: None)
  Receive Date: 20051212
  Receipt Date: 20051201
  Transmission Date: 20060501
  Serious: Yes (Death)
  Sender: FDA-Public Use
  Company Number: 2005-11-1333

PATIENT
  Age: 54 Year
  Sex: Male

DRUGS (11)
  1. TEMODAL [Suspect]
     Dosage: 400MGX5DQM ORAL
     Route: 048
     Dates: start: 20040515, end: 20041018
  2. NOVOSEMIDE [Concomitant]
  3. DILANTIN [Concomitant]
  4. NOZINAN TABLETS [Concomitant]
  5. DEXAMETHASONE [Concomitant]
  6. NOVOSPIROTON TABLETS [Concomitant]
  7. ATIVAN [Concomitant]
  8. TRAZODONE HCL [Concomitant]
  9. METFORMIN HCL [Concomitant]
  10. RANITIDINE [Concomitant]
  11. VASOTEC [Concomitant]

REACTIONS (1)
  - DEATH [None]
